FAERS Safety Report 25478875 (Version 1)
Quarter: 2025Q2

REPORT INFORMATION
  Report Type: Spontaneous
  Country: US (occurrence: None)
  Receive Date: 20250624
  Receipt Date: 20250624
  Transmission Date: 20250716
  Serious: Yes (unspecified)
  Sender: FDA-CTU
  Company Number: None

PATIENT
  Age: 56 Year
  Sex: Female
  Weight: 100 kg

DRUGS (22)
  1. EMGALITY [Suspect]
     Active Substance: GALCANEZUMAB-GNLM
     Indication: Migraine
     Dosage: OTHER FREQUENCY : MONTHLY;?
     Route: 058
     Dates: start: 20211005, end: 20250506
  2. ADALIMUMAB [Concomitant]
     Active Substance: ADALIMUMAB
  3. BELBUCA [Concomitant]
     Active Substance: BUPRENORPHINE HYDROCHLORIDE
  4. CHOLECALCIFEROL [Concomitant]
     Active Substance: CHOLECALCIFEROL
  5. CLINDAMYCIN [Concomitant]
     Active Substance: CLINDAMYCIN
  6. cyanocobalamin (injectable) [Concomitant]
  7. CYCLOBENZAPRINE [Concomitant]
     Active Substance: CYCLOBENZAPRINE
  8. DULOXETINE [Concomitant]
     Active Substance: DULOXETINE
  9. estradiol (vaginal cream) [Concomitant]
  10. FERROUS GLUCONATE [Concomitant]
     Active Substance: FERROUS GLUCONATE
  11. ACETAMINOPHEN\HYDROCODONE [Concomitant]
     Active Substance: ACETAMINOPHEN\HYDROCODONE
  12. INSULIN NOS [Concomitant]
     Active Substance: INSULIN NOS
  13. LOSARTAN [Concomitant]
     Active Substance: LOSARTAN
  14. Mg glycinate [Concomitant]
  15. METFORMIN [Concomitant]
     Active Substance: METFORMIN HYDROCHLORIDE
  16. MONTELUKAST [Concomitant]
     Active Substance: MONTELUKAST
  17. PRAVASTATIN [Concomitant]
     Active Substance: PRAVASTATIN
  18. PREGABALIN [Concomitant]
     Active Substance: PREGABALIN
  19. SEMAGLUTIDE [Concomitant]
     Active Substance: SEMAGLUTIDE
  20. TIZANIDINE [Concomitant]
     Active Substance: TIZANIDINE
  21. TRAZODONE [Concomitant]
     Active Substance: TRAZODONE HYDROCHLORIDE
  22. RIBOFLAVIN [Concomitant]
     Active Substance: RIBOFLAVIN

REACTIONS (2)
  - Alopecia [None]
  - Alopecia [None]

NARRATIVE: CASE EVENT DATE: 20250506
